FAERS Safety Report 21036051 (Version 1)
Quarter: 2022Q3

REPORT INFORMATION
  Report Type: Spontaneous
  Country: US (occurrence: US)
  Receive Date: 20220701
  Receipt Date: 20220701
  Transmission Date: 20221027
  Serious: No
  Sender: FDA-Public Use
  Company Number: US-KRAMERLABS-2022-US-007017

PATIENT
  Sex: Female

DRUGS (2)
  1. NIZORAL A-D [Suspect]
     Active Substance: KETOCONAZOLE
     Indication: Dandruff
     Dosage: AS NEEDED SINCE 2020. USED EVERY OTHER DAY OR DAILY APPROXIMATELY FROM 1-MAR-2022.
     Route: 061
     Dates: start: 2020, end: 20220318
  2. Hormone supplements [Concomitant]

REACTIONS (7)
  - Skin irritation [Unknown]
  - Alopecia [Not Recovered/Not Resolved]
  - Inappropriate schedule of product administration [Recovered/Resolved]
  - Intentional product misuse [Recovered/Resolved]
  - Condition aggravated [Recovered/Resolved]
  - Dandruff [Recovered/Resolved]
  - Drug ineffective [Recovered/Resolved]

NARRATIVE: CASE EVENT DATE: 20220310
